FAERS Safety Report 4748720-3 (Version None)
Quarter: 2005Q3

REPORT INFORMATION
  Report Type: 
  Country: None (occurrence: None)
  Receive Date: 20050816
  Receipt Date: 20050713
  Transmission Date: 20060218
  Serious: Yes (Life-Threatening)
  Sender: FDA-Public Use
  Company Number: ALB/05/02/USA

PATIENT
  Age: 62 Year
  Sex: Female
  Weight: 90 kg

DRUGS (14)
  1. ALBUMIN (HUMAN) [Suspect]
     Indication: BLOOD ALBUMIN DECREASED
     Dosage: 100 ML, ONCE, I.V.
     Route: 042
     Dates: start: 20050709, end: 20050709
  2. ALBUMIN (HUMAN) [Suspect]
     Indication: PREOPERATIVE CARE
     Dosage: 100 ML, ONCE, I.V.
     Route: 042
     Dates: start: 20050709, end: 20050709
  3. DEXTROSE-SALT SOLUTION (DEXTROSE AND SODIUM CHLORIDE INJECTION) [Concomitant]
  4. FERROUS SULFATE TAB [Concomitant]
  5. HYDROXYCHLOROQUINE SULFATE [Concomitant]
  6. LOSARTAN POTASSIUM [Concomitant]
  7. METRONIDAZOLE [Concomitant]
  8. MOXIFLOXACIN HCL [Concomitant]
  9. PANTOPRAZOLE SODIUM [Concomitant]
  10. PREDNISONE [Concomitant]
  11. POTASSIUM CHLORIDE [Concomitant]
  12. MORPHINE [Concomitant]
  13. ATROPINE X1 (ATROPINE) [Concomitant]
  14. SOLU-CORTEF [Concomitant]

REACTIONS (1)
  - ANAPHYLACTIC REACTION [None]
